FAERS Safety Report 8020564-9 (Version None)
Quarter: 2012Q1

REPORT INFORMATION
  Report Type: 
  Country: None (occurrence: None)
  Receive Date: 20120103
  Receipt Date: 20111228
  Transmission Date: 20120608
  Serious: Yes (Hospitalization)
  Sender: FDA-Public Use
  Company Number: JP-MERCK-1111USA00689

PATIENT
  Age: 69 Year
  Sex: Male
  Weight: 60 kg

DRUGS (5)
  1. ZETIA [Suspect]
     Indication: DYSLIPIDAEMIA
     Route: 048
     Dates: start: 20100108, end: 20111027
  2. CANDESARTAN CILEXETIL [Concomitant]
     Indication: HYPERTENSION
     Dosage: THE DIVIDED DOSE FREQUENCY IS UNCERTAIN
     Route: 048
     Dates: start: 20041008, end: 20111027
  3. LIVALO [Concomitant]
     Indication: DYSLIPIDAEMIA
     Dosage: THE DIVIDED DOSE FREQUENCY IS UNCERTAIN
     Route: 048
     Dates: start: 20050728
  4. OLMESARTAN MEDOXOMIL [Concomitant]
     Indication: HYPERTENSION
     Dosage: THE DIVIDED DOSE FREQUENCY IS UNCERTAIN
     Route: 048
     Dates: start: 20050725, end: 20111027
  5. PRAVASTATIN SODIUM [Concomitant]
     Indication: DYSLIPIDAEMIA
     Dosage: THE DIVIDED DOSE FREQUENCY IS UNCERTAIN
     Route: 048
     Dates: start: 20041008

REACTIONS (2)
  - BLOOD CREATINE PHOSPHOKINASE INCREASED [None]
  - VASCULITIS [None]
